FAERS Safety Report 16231188 (Version 2)
Quarter: 2019Q3

REPORT INFORMATION
  Report Type: Report from Study
  Country: JP (occurrence: JP)
  Receive Date: 20190424
  Receipt Date: 20190708
  Transmission Date: 20191004
  Serious: No
  Sender: FDA-Public Use
  Company Number: JP-ALEXION PHARMACEUTICALS INC.-A201906031

PATIENT

DRUGS (7)
  1. GASLON [Concomitant]
     Active Substance: IRSOGLADINE MALEATE
     Indication: PROPHYLAXIS
     Dosage: 4 MG, DAILY
     Route: 065
     Dates: start: 20151106
  2. POPIDON [Concomitant]
     Indication: NASOPHARYNGITIS
     Dosage: ADEQUATE DOSE, DAILY
     Route: 065
     Dates: start: 20181023
  3. URSO [Concomitant]
     Active Substance: URSODIOL
     Indication: LIVER FUNCTION TEST INCREASED
     Dosage: 300 MG, DAILY
     Route: 065
     Dates: start: 20151110, end: 20181212
  4. SOLIRIS [Suspect]
     Active Substance: ECULIZUMAB
     Indication: PAROXYSMAL NOCTURNAL HAEMOGLOBINURIA
     Dosage: 600 MG, QW
     Route: 042
     Dates: start: 20181121, end: 20181212
  5. SOLIRIS [Suspect]
     Active Substance: ECULIZUMAB
     Dosage: 900 MG, Q2W
     Route: 042
     Dates: start: 20181219
  6. FOLIAMIN [Concomitant]
     Active Substance: FOLIC ACID
     Indication: PAROXYSMAL NOCTURNAL HAEMOGLOBINURIA
     Dosage: 15 MG, DAILY
     Route: 065
     Dates: start: 20170117
  7. LANSOPRAZOLE. [Concomitant]
     Active Substance: LANSOPRAZOLE
     Indication: PROPHYLAXIS
     Dosage: 15 MG, DAILY
     Route: 065
     Dates: start: 20181103

REACTIONS (2)
  - Condition aggravated [Recovered/Resolved]
  - Anaemia [Recovered/Resolved]

NARRATIVE: CASE EVENT DATE: 20181212
